FAERS Safety Report 23466992 (Version 2)
Quarter: 2024Q1

REPORT INFORMATION
  Report Type: Spontaneous
  Country: US (occurrence: US)
  Receive Date: 20240201
  Receipt Date: 20240209
  Transmission Date: 20240409
  Serious: Yes (Other)
  Sender: FDA-Public Use
  Company Number: US-002147023-NVSC2024US022438

PATIENT
  Sex: Female

DRUGS (1)
  1. KYMRIAH [Suspect]
     Active Substance: TISAGENLECLEUCEL
     Indication: Non-Hodgkin^s lymphoma
     Dosage: UNK (ONE DOSE OF CART KYMRIAH CELLS)
     Route: 065

REACTIONS (2)
  - Myelodysplastic syndrome [Unknown]
  - Second primary malignancy [Unknown]
